FAERS Safety Report 26022754 (Version 1)
Quarter: 2025Q4

REPORT INFORMATION
  Report Type: Spontaneous
  Country: JP (occurrence: JP)
  Receive Date: 20251110
  Receipt Date: 20251110
  Transmission Date: 20260117
  Serious: Yes (Death, Hospitalization)
  Sender: JAZZ
  Company Number: JP-JAZZ PHARMACEUTICALS-2025-JP-025391

PATIENT
  Age: 68 Year
  Sex: Female
  Weight: 51 kg

DRUGS (7)
  1. VYXEOS [Suspect]
     Active Substance: CYTARABINE\DAUNORUBICIN
     Indication: Acute myeloid leukaemia
     Dosage: 100 UNITS/M2 DAILY, FIRST CYCLE
     Dates: start: 20250104, end: 20250104
  2. VYXEOS [Suspect]
     Active Substance: CYTARABINE\DAUNORUBICIN
     Dosage: 100 UNITS/M2 DAILY, FIRST CYCLE
     Dates: start: 20250106, end: 20250106
  3. VYXEOS [Suspect]
     Active Substance: CYTARABINE\DAUNORUBICIN
     Dosage: 100 UNITS/M2 DAILY, FIRST CYCLE
     Dates: start: 20250108, end: 20250108
  4. VYXEOS [Suspect]
     Active Substance: CYTARABINE\DAUNORUBICIN
     Dosage: 100 UNITS/M2 DAILY, SECOND CYCLE
     Dates: start: 20250128, end: 20250128
  5. VYXEOS [Suspect]
     Active Substance: CYTARABINE\DAUNORUBICIN
     Dosage: UNK
     Dates: start: 20250130, end: 20250130
  6. VYXEOS [Suspect]
     Active Substance: CYTARABINE\DAUNORUBICIN
     Dosage: 75 UNITS/M2 DAILY, FIRST CYCLE
     Dates: start: 20250303, end: 20250303
  7. VYXEOS [Suspect]
     Active Substance: CYTARABINE\DAUNORUBICIN
     Dosage: UNK
     Dates: start: 20250305, end: 20250305

REACTIONS (4)
  - Acute myeloid leukaemia [Fatal]
  - Leukopenia [Recovered/Resolved]
  - Anaemia [Recovering/Resolving]
  - Thrombocytopenia [Not Recovered/Not Resolved]

NARRATIVE: CASE EVENT DATE: 20250101
